FAERS Safety Report 8799694 (Version 1)
Quarter: 2012Q4

REPORT INFORMATION
  Report Type: 
  Country: US (occurrence: US)
  Receive Date: 20120919
  Receipt Date: 20120919
  Transmission Date: 20130627
  Serious: No
  Sender: FDA-Public Use
  Company Number: US-009507513-1209USA003584

PATIENT

DRUGS (2)
  1. SAPHRIS [Suspect]
     Indication: BIPOLAR DISORDER
     Dosage: 10 mg, qd
     Route: 060
     Dates: start: 201208
  2. CARBAMAZEPINE [Concomitant]

REACTIONS (3)
  - Abnormal dreams [Unknown]
  - Feeling abnormal [Unknown]
  - Irritability [Unknown]
